FAERS Safety Report 4648740-3 (Version None)
Quarter: 2005Q2

REPORT INFORMATION
  Report Type: 
  Country: None (occurrence: None)
  Receive Date: 20050429
  Receipt Date: 20050418
  Transmission Date: 20051028
  Serious: Yes (Hospitalization, Other)
  Sender: FDA-Public Use
  Company Number: CA-AMGEN-US127581

PATIENT
  Sex: Male

DRUGS (4)
  1. ARANESP [Suspect]
     Indication: DIALYSIS
     Dates: start: 20050101, end: 20050414
  2. TACROLIMUS [Concomitant]
     Dates: start: 20000101
  3. CELLCEPT [Concomitant]
     Dates: start: 20020101, end: 20040415
  4. PREDNISONE [Concomitant]

REACTIONS (4)
  - ANAEMIA [None]
  - BONE MARROW DEPRESSION [None]
  - FAECAL OCCULT BLOOD POSITIVE [None]
  - WEIGHT DECREASED [None]
